FAERS Safety Report 18418417 (Version 2)
Quarter: 2020Q4

REPORT INFORMATION
  Report Type: Spontaneous
  Country: US (occurrence: US)
  Receive Date: 20201023
  Receipt Date: 20201130
  Transmission Date: 20210114
  Serious: Yes (Hospitalization, Disabling, Other)
  Sender: FDA-Public Use
  Company Number: US-HIKMA PHARMACEUTICALS USA INC.-US-H14001-20-04848

PATIENT
  Sex: Female

DRUGS (3)
  1. MYLAN COLCHICINE [Suspect]
     Active Substance: COLCHICINE
     Indication: BRUCELLOSIS
     Route: 048
  2. COLCHICINE. [Suspect]
     Active Substance: COLCHICINE
     Indication: BRUCELLOSIS
     Route: 065
  3. MYLAN COLCHICINE [Suspect]
     Active Substance: COLCHICINE
     Route: 048

REACTIONS (6)
  - Nervousness [Unknown]
  - Drug hypersensitivity [Unknown]
  - Malaise [Unknown]
  - Insomnia [Unknown]
  - Feeling abnormal [Unknown]
  - Overdose [Unknown]
